FAERS Safety Report 6596635-0 (Version None)
Quarter: 2010Q1

REPORT INFORMATION
  Report Type: 
  Country: None (occurrence: None)
  Receive Date: 20100222
  Receipt Date: 20100222
  Transmission Date: 20100710
  Serious: Yes (Life-Threatening)
  Sender: FDA-Public Use
  Company Number: None

PATIENT
  Age: 49 Year
  Sex: Female
  Weight: 79.3795 kg

DRUGS (1)
  1. PROAIR HFA [Suspect]
     Indication: ASTHMA
     Dosage: 1 PUFF RESCUE INHALER PRN INHAL TWO YEARS OR MORE
     Route: 055

REACTIONS (4)
  - DEVICE MALFUNCTION [None]
  - DIZZINESS [None]
  - DYSPNOEA [None]
  - PRODUCT QUALITY ISSUE [None]
